FAERS Safety Report 11169238 (Version 1)
Quarter: 2015Q2

REPORT INFORMATION
  Report Type: Spontaneous
  Country: US (occurrence: US)
  Receive Date: 20150605
  Receipt Date: 20150605
  Transmission Date: 20150821
  Serious: Yes (Death)
  Sender: FDA-Public Use
  Company Number: US-PFIZER INC-2015186966

PATIENT
  Age: 66 Year
  Sex: Male
  Weight: 71 kg

DRUGS (1)
  1. TORISEL [Suspect]
     Active Substance: TEMSIROLIMUS
     Indication: NEOPLASM MALIGNANT
     Dosage: 25 MG, UNK
     Route: 042
     Dates: start: 20150410, end: 20150424

REACTIONS (2)
  - Disease progression [Fatal]
  - Neoplasm malignant [Fatal]
